FAERS Safety Report 25217872 (Version 1)
Quarter: 2025Q2

REPORT INFORMATION
  Report Type: Spontaneous
  Country: US (occurrence: US)
  Receive Date: 20250421
  Receipt Date: 20250421
  Transmission Date: 20250716
  Serious: Yes (Death, Life-Threatening, Other)
  Sender: BAXTER
  Company Number: US-BAXTER-2025BAX014065

PATIENT
  Age: 61 Year
  Sex: Female
  Weight: 57.3 kg

DRUGS (24)
  1. CYCLOPHOSPHAMIDE [Suspect]
     Active Substance: CYCLOPHOSPHAMIDE
     Indication: Lymphodepletion
     Route: 042
     Dates: start: 20250315, end: 20250315
  2. CYCLOPHOSPHAMIDE [Suspect]
     Active Substance: CYCLOPHOSPHAMIDE
     Route: 042
     Dates: start: 20250316, end: 20250316
  3. CYCLOPHOSPHAMIDE [Suspect]
     Active Substance: CYCLOPHOSPHAMIDE
     Route: 042
     Dates: start: 20250317, end: 20250317
  4. PANTOPRAZOLE [Suspect]
     Active Substance: PANTOPRAZOLE
     Route: 065
     Dates: start: 20250219
  5. POTASSIUM CHLORIDE [Suspect]
     Active Substance: POTASSIUM CHLORIDE
     Route: 065
     Dates: start: 20240830
  6. SODIUM CHLORIDE [Suspect]
     Active Substance: SODIUM CHLORIDE
     Route: 065
     Dates: start: 20250321, end: 20250321
  7. FUROSEMIDE [Suspect]
     Active Substance: FUROSEMIDE
     Route: 065
     Dates: start: 20250312, end: 20250319
  8. ACETAMINOPHEN [Suspect]
     Active Substance: ACETAMINOPHEN
     Route: 065
     Dates: start: 20250320
  9. VANCOMYCIN [Suspect]
     Active Substance: VANCOMYCIN
     Route: 065
     Dates: start: 20250324, end: 20250324
  10. FAMOTIDINE [Suspect]
     Active Substance: FAMOTIDINE
     Route: 065
     Dates: start: 20250314, end: 20250326
  11. FLUDARABINE [Suspect]
     Active Substance: FLUDARABINE PHOSPHATE
     Indication: Lymphodepletion
     Route: 042
     Dates: start: 20250314, end: 20250314
  12. FLUDARABINE [Suspect]
     Active Substance: FLUDARABINE PHOSPHATE
     Route: 042
     Dates: start: 20250315, end: 20250315
  13. FLUDARABINE [Suspect]
     Active Substance: FLUDARABINE PHOSPHATE
     Route: 042
     Dates: start: 20250316, end: 20250316
  14. FLUDARABINE [Suspect]
     Active Substance: FLUDARABINE PHOSPHATE
     Route: 042
     Dates: start: 20250317, end: 20250317
  15. BUDESONIDE [Concomitant]
     Active Substance: BUDESONIDE
     Route: 065
     Dates: start: 20250115
  16. ACYCLOVIR [Concomitant]
     Active Substance: ACYCLOVIR
     Route: 065
     Dates: start: 20240701
  17. CHOLECALCIFEROL [Concomitant]
     Active Substance: CHOLECALCIFEROL
     Route: 065
     Dates: start: 20240712
  18. DAPSONE [Concomitant]
     Active Substance: DAPSONE
     Route: 065
     Dates: start: 20241030
  19. LETERMOVIR [Concomitant]
     Active Substance: LETERMOVIR
     Route: 065
     Dates: start: 20240719
  20. LEVOTHYROXINE [Concomitant]
     Active Substance: LEVOTHYROXINE
     Route: 065
     Dates: start: 20240109
  21. ETOMIDATE [Concomitant]
     Active Substance: ETOMIDATE
     Route: 065
     Dates: start: 20250325, end: 20250325
  22. ROCURONIUM [Concomitant]
     Active Substance: ROCURONIUM BROMIDE
     Route: 065
     Dates: start: 20250325, end: 20250326
  23. POSACONAZOLE [Concomitant]
     Active Substance: POSACONAZOLE
     Route: 065
     Dates: start: 20250320
  24. DIPHENHYDRAMINE [Concomitant]
     Active Substance: DIPHENHYDRAMINE
     Route: 065
     Dates: start: 20250312

REACTIONS (23)
  - Haemophagocytic lymphohistiocytosis [Fatal]
  - Cytokine release syndrome [Unknown]
  - Immune effector cell-associated neurotoxicity syndrome [Unknown]
  - Neurotoxicity [Unknown]
  - Lactic acidosis [Unknown]
  - Pupil fixed [Unknown]
  - Brain oedema [Unknown]
  - Shock [Unknown]
  - Acute respiratory failure [Not Recovered/Not Resolved]
  - Acute hepatic failure [Unknown]
  - Encephalopathy [Unknown]
  - Febrile neutropenia [Unknown]
  - Sepsis [Unknown]
  - Mydriasis [Unknown]
  - Wheezing [Unknown]
  - Coagulopathy [Unknown]
  - Mental status changes [Unknown]
  - Agitation [Unknown]
  - Hypoglycaemia [Unknown]
  - Hypotension [Unknown]
  - Tremor [Unknown]
  - Pyrexia [Unknown]
  - Bradycardia [Unknown]

NARRATIVE: CASE EVENT DATE: 20250320
